FAERS Safety Report 12227087 (Version 2)
Quarter: 2016Q2

REPORT INFORMATION
  Report Type: Spontaneous
  Country: US (occurrence: US)
  Receive Date: 20160331
  Receipt Date: 20160415
  Transmission Date: 20160815
  Serious: Yes (Other)
  Sender: FDA-Public Use
  Company Number: US-TARO-2016TAR00270

PATIENT
  Sex: Female

DRUGS (5)
  1. POTASSIUM [Suspect]
     Active Substance: POTASSIUM
     Dosage: 40 MEQ, UNK
     Dates: start: 20160318
  2. KEVEYIS [Suspect]
     Active Substance: DICHLORPHENAMIDE
     Dosage: UNK
     Route: 048
     Dates: start: 20160308
  3. ACETAZOLAMIDE. [Suspect]
     Active Substance: ACETAZOLAMIDE
  4. POTASSIUM [Suspect]
     Active Substance: POTASSIUM
     Dosage: 20 MEQ, UNK
     Dates: end: 20160307
  5. POTASSIUM [Suspect]
     Active Substance: POTASSIUM
     Dosage: 30 MEQ, UNK
     Dates: start: 20160308, end: 20160317

REACTIONS (1)
  - Vision blurred [Recovering/Resolving]

NARRATIVE: CASE EVENT DATE: 20160318
